FAERS Safety Report 10133522 (Version 4)
Quarter: 2014Q2

REPORT INFORMATION
  Report Type: Report from Study
  Country: None (occurrence: IT)
  Receive Date: 20140428
  Receipt Date: 20140617
  Transmission Date: 20141212
  Serious: Yes (Hospitalization)
  Sender: FDA-Public Use
  Company Number: IT-TEVA-477521ISR

PATIENT
  Age: 71 Year
  Sex: Male
  Weight: 68 kg

DRUGS (3)
  1. RIBAVIRIN [Suspect]
     Indication: HEPATIC CIRRHOSIS
     Dosage: 1200 MILLIGRAM DAILY;
     Route: 048
     Dates: start: 20130321, end: 20140220
  2. PEGASYS [Suspect]
     Indication: HEPATIC CIRRHOSIS
     Dosage: 180 UG WEEKLY
     Route: 058
     Dates: start: 20130321, end: 20140220
  3. BOCEPREVIR [Suspect]
     Indication: HEPATIC CIRRHOSIS
     Dosage: 2400 MILLIGRAM DAILY;
     Route: 048
     Dates: start: 20130418, end: 20140220

REACTIONS (1)
  - Peritonitis bacterial [Recovered/Resolved]
